FAERS Safety Report 6334894-X (Version None)
Quarter: 2009Q3

REPORT INFORMATION
  Report Type: 
  Country: None (occurrence: None)
  Receive Date: 20090831
  Receipt Date: 20090826
  Transmission Date: 20100115
  Serious: Yes (Hospitalization)
  Sender: FDA-Public Use
  Company Number: JP-EISAI INC.-E2020-05123-SPO-JP

PATIENT
  Age: 77 Year
  Sex: Female

DRUGS (2)
  1. ARICEPT [Suspect]
     Dates: start: 20060101, end: 20060101
  2. ARICEPT [Suspect]
     Route: 048
     Dates: start: 20060101, end: 20080101

REACTIONS (1)
  - TOURETTE'S DISORDER [None]
